FAERS Safety Report 5793206-0 (Version None)
Quarter: 2008Q2

REPORT INFORMATION
  Report Type: 
  Country: None (occurrence: None)
  Receive Date: 20080626
  Receipt Date: 20080626
  Transmission Date: 20081010
  Serious: Yes (Death)
  Sender: FDA-Public Use
  Company Number: None

PATIENT
  Sex: Male

DRUGS (8)
  1. REVLIMID [Suspect]
     Indication: MYELODYSPLASTIC SYNDROME
     Dosage: 5MG DAILY PO
     Route: 048
     Dates: start: 20080417, end: 20080603
  2. SPRIONLACTONE [Concomitant]
  3. RANITIDINE HCL [Concomitant]
  4. TEMAZEPAM [Concomitant]
  5. FUROSEMIDE [Concomitant]
  6. POTASSIUM SUPPLEMENT [Concomitant]
  7. FOLIC ACID [Concomitant]
  8. TERAZOSIN HCL [Concomitant]

REACTIONS (4)
  - PANCYTOPENIA [None]
  - POST PROCEDURAL COMPLICATION [None]
  - REFRACTORINESS TO PLATELET TRANSFUSION [None]
  - VOLVULUS [None]
